FAERS Safety Report 19424166 (Version 2)
Quarter: 2021Q3

REPORT INFORMATION
  Report Type: Spontaneous
  Country: MD (occurrence: MD)
  Receive Date: 20210616
  Receipt Date: 20210805
  Transmission Date: 20211014
  Serious: Yes (Other)
  Sender: FDA-Public Use
  Company Number: NVSC2021MD132357

PATIENT
  Age: 29 Year
  Sex: Female
  Weight: 62 kg

DRUGS (1)
  1. AMOKSIKLAV(R) QUICKTAB (AMOXICILLIN TRIHYDRATE\POTASSIUM CLAVULANATE) [Suspect]
     Active Substance: AMOXICILLIN\CLAVULANATE POTASSIUM
     Indication: BRONCHITIS
     Dosage: 1 DF, QD (PER OS)
     Route: 065
     Dates: start: 20210601, end: 20210601

REACTIONS (10)
  - Dehydration [Recovered/Resolved]
  - Angioedema [Recovered/Resolved]
  - Dizziness [Recovered/Resolved]
  - Swollen tongue [Recovered/Resolved]
  - Rash [Recovered/Resolved]
  - Pharyngeal oedema [Recovered/Resolved]
  - Confusional state [Recovered/Resolved]
  - Swelling face [Recovered/Resolved]
  - Heart rate increased [Recovered/Resolved]
  - Hypoaesthesia oral [Recovered/Resolved]

NARRATIVE: CASE EVENT DATE: 20210601
